FAERS Safety Report 9587267 (Version 1)
Quarter: 2013Q4

REPORT INFORMATION
  Report Type: Report from Study
  Country: GB (occurrence: GB)
  Receive Date: 20131003
  Receipt Date: 20131003
  Transmission Date: 20140711
  Serious: Yes (Hospitalization, Other)
  Sender: FDA-Public Use
  Company Number: GB-ROCHE-1281775

PATIENT
  Age: 50 Year
  Sex: Male
  Weight: 92 kg

DRUGS (1)
  1. RITUXIMAB [Suspect]
     Indication: RHEUMATOID ARTHRITIS
     Dosage: LAST DOSE PRIOR TO SAE ON 14/FEB/2012
     Route: 042
     Dates: start: 20100715

REACTIONS (3)
  - Hydronephrosis [Unknown]
  - Pancreatitis chronic [Unknown]
  - Bladder papilloma [Unknown]
